FAERS Safety Report 17485090 (Version 3)
Quarter: 2020Q2

REPORT INFORMATION
  Report Type: Report from Study
  Country: US (occurrence: US)
  Receive Date: 20200302
  Receipt Date: 20200502
  Transmission Date: 20200713
  Serious: Yes (Other)
  Sender: FDA-Public Use
  Company Number: NVSC2020US059505

PATIENT
  Sex: Female

DRUGS (2)
  1. GILENYA [Suspect]
     Active Substance: FINGOLIMOD HYDROCHLORIDE
     Dosage: UNK, QOD
     Route: 065
     Dates: start: 202003
  2. GILENYA [Suspect]
     Active Substance: FINGOLIMOD HYDROCHLORIDE
     Indication: MULTIPLE SCLEROSIS
     Dosage: 0.5 MG, QD
     Route: 048
     Dates: start: 20200308

REACTIONS (7)
  - Pain in extremity [Unknown]
  - Depressed mood [Unknown]
  - Multiple sclerosis relapse [Recovered/Resolved]
  - Off label use [Unknown]
  - Nasopharyngitis [Unknown]
  - Product supply issue [Unknown]
  - Multiple sclerosis relapse [Unknown]
